FAERS Safety Report 17545710 (Version 1)
Quarter: 2020Q1

REPORT INFORMATION
  Report Type: Spontaneous
  Country: IN (occurrence: IN)
  Receive Date: 20200316
  Receipt Date: 20200316
  Transmission Date: 20200409
  Serious: Yes (Life-Threatening, Other)
  Sender: FDA-Public Use
  Company Number: IN-AMGEN-INDSP2020041482

PATIENT

DRUGS (1)
  1. FILGRASTIM [Suspect]
     Active Substance: FILGRASTIM
     Indication: PROPHYLAXIS
     Dosage: 300 MICROGRAM/QD FOR WEIGHT {60 KG, 480 PG/DAY, FOR WEIGHT }60 KG, FOR AT LEAST 10 CONSECUTIVE DAYS)
     Route: 058

REACTIONS (3)
  - Neutropenia [Unknown]
  - Bone marrow failure [Unknown]
  - Infection [Unknown]
